FAERS Safety Report 10570864 (Version 1)
Quarter: 2014Q4

REPORT INFORMATION
  Report Type: Spontaneous
  Country: GB (occurrence: GB)
  Receive Date: 20141107
  Receipt Date: 20141107
  Transmission Date: 20150529
  Serious: Yes (Hospitalization, Disabling)
  Sender: FDA-Public Use
  Company Number: PHHY2014GB143749

PATIENT
  Age: 72 Year
  Sex: Female
  Weight: 93.7 kg

DRUGS (18)
  1. FUROSEMIDE. [Concomitant]
     Active Substance: FUROSEMIDE
     Dosage: 20 MG,1 IN 1 D
     Route: 048
  2. MEROPENEM. [Suspect]
     Active Substance: MEROPENEM
     Dosage: 1000 MG
     Route: 042
     Dates: start: 20110215, end: 20110216
  3. MEROPENEM. [Suspect]
     Active Substance: MEROPENEM
     Indication: BRONCHIECTASIS
     Dosage: 2000 MG,1 IN 8 HR
     Route: 042
     Dates: start: 20110214, end: 20110214
  4. TIOTROPIUM [Concomitant]
     Active Substance: TIOTROPIUM
     Dosage: 18 MCG,1 IN 1 D
     Route: 055
  5. HEPARIN SODIUM. [Concomitant]
     Active Substance: HEPARIN SODIUM
     Dosage: 50 UNITS (3 IN 1 D)
  6. SERETIDE [Concomitant]
     Active Substance: FLUTICASONE FUROATE\SALMETEROL XINAFOATE
     Dosage: 2 DOSAGE FORMS,2 IN 1 D
     Route: 055
  7. AZITHROMYCIN [Concomitant]
     Active Substance: AZITHROMYCIN ANHYDROUS
     Dosage: 250 MG,1 IN 1 D
     Route: 048
  8. SALBUTAMOL [Concomitant]
     Active Substance: ALBUTEROL
     Dosage: 100 MCG,AS REQUIRED, 10 MG (2.5 MG,AS REQUIRED)
     Route: 055
  9. CLOTRIMAZOLE. [Concomitant]
     Active Substance: CLOTRIMAZOLE
  10. COLOMYCIN [Suspect]
     Active Substance: COLISTIN
     Indication: BACTERIAL DISEASE CARRIER
     Dosage: 2 MILLION INTERNATIONAL UNITS. 6 MU (2 MU, 3 IN 1D).
     Route: 040
     Dates: start: 20110204, end: 20110216
  11. COLOMYCIN [Suspect]
     Active Substance: COLISTIN
     Dosage: 2 MILLION INTERNATIONAL UNITS. 6 MU (2 MU, 3 IN 1D)
     Route: 042
     Dates: start: 201102, end: 201102
  12. ALENDRONATE [Concomitant]
     Active Substance: ALENDRONATE SODIUM
     Dosage: 70 MG,1 IN 7 D
     Route: 048
  13. PREDNISOLONE. [Concomitant]
     Active Substance: PREDNISOLONE
     Dosage: 30 MG,1 IN 1 D
     Route: 048
  14. MONTELUKAST [Concomitant]
     Active Substance: MONTELUKAST SODIUM
     Dosage: 10 MG,1 IN 1 D
     Route: 048
  15. CHLORPHENAMINE [Concomitant]
     Active Substance: CHLORPHENIRAMINE MALEATE
     Dosage: 4 MG, AS REQUIRED
     Route: 048
  16. LEKOVIT CA [Concomitant]
     Active Substance: CALCIUM CARBONATE\CHOLECALCIFEROL
     Dosage: ADCAL D3 (CA) TABLET. 2 DF (2 DOSAGE FORMS, 1 IN 1D)
     Route: 048
  17. CARBOCISTEINE [Concomitant]
     Active Substance: CARBOCYSTEINE
     Dosage: 750 MG,3 IN 1 D
     Route: 048
  18. IPRATROPIUM [Concomitant]
     Active Substance: IPRATROPIUM
     Dosage: 500 MCG, 4 IN 1 D
     Route: 055

REACTIONS (13)
  - Weight increased [Recovering/Resolving]
  - Medication error [Unknown]
  - Balance disorder [Not Recovered/Not Resolved]
  - Fall [Not Recovered/Not Resolved]
  - Burning sensation [Unknown]
  - Secretion discharge [Unknown]
  - Constipation [Unknown]
  - Nausea [Unknown]
  - Off label use [Unknown]
  - Dizziness [Unknown]
  - Headache [Recovered/Resolved]
  - Decreased appetite [Unknown]
  - Rash [Unknown]

NARRATIVE: CASE EVENT DATE: 20110204
